FAERS Safety Report 24314263 (Version 2)
Quarter: 2024Q3

REPORT INFORMATION
  Report Type: Spontaneous
  Country: GB (occurrence: RU)
  Receive Date: 20240912
  Receipt Date: 20240923
  Transmission Date: 20241017
  Serious: Yes (Other)
  Sender: SUNOVION
  Company Number: RU-CNX THERAPEUTICS-2024CNX000577

PATIENT

DRUGS (1)
  1. LATUDA [Suspect]
     Active Substance: LURASIDONE HYDROCHLORIDE
     Indication: Acute psychosis
     Dosage: 80 MG,QD
     Route: 048
     Dates: start: 20240809, end: 20240824

REACTIONS (2)
  - Acute psychosis [Recovering/Resolving]
  - Off label use [Recovered/Resolved]

NARRATIVE: CASE EVENT DATE: 20240812
